FAERS Safety Report 4730167-7 (Version None)
Quarter: 2005Q3

REPORT INFORMATION
  Report Type: 
  Country: None (occurrence: None)
  Receive Date: 20050729
  Receipt Date: 20050729
  Transmission Date: 20060218
  Serious: Yes (Death, Hospitalization)
  Sender: FDA-Public Use
  Company Number: None

PATIENT
  Sex: Male
  Weight: 80 kg

DRUGS (3)
  1. CYTARABINE [Suspect]
     Indication: ACUTE MYELOID LEUKAEMIA
     Dosage: SEE IMAGE
     Route: 042
     Dates: start: 20031202, end: 20031208
  2. DAUNOMYCIN [Suspect]
     Dosage: SEE IMAGE
     Route: 042
     Dates: start: 20031202, end: 20031204
  3. VP-16-213 [Suspect]
     Dosage: SEE IMAGE
     Route: 042
     Dates: start: 20031202, end: 20031204

REACTIONS (10)
  - ASPIRATION [None]
  - ATRIAL FIBRILLATION [None]
  - AZOTAEMIA [None]
  - BLOOD BICARBONATE DECREASED [None]
  - CARDIO-RESPIRATORY ARREST [None]
  - FEBRILE NEUTROPENIA [None]
  - HYPOTENSION [None]
  - PSEUDOMONAS INFECTION [None]
  - RENAL FAILURE ACUTE [None]
  - RESPIRATORY FAILURE [None]
